FAERS Safety Report 26113144 (Version 1)
Quarter: 2025Q4

REPORT INFORMATION
  Report Type: Spontaneous
  Country: US (occurrence: US)
  Receive Date: 20251202
  Receipt Date: 20251202
  Transmission Date: 20260117
  Serious: Yes (Hospitalization, Other)
  Sender: SPECGX
  Company Number: US-SPECGX-T202501898

PATIENT
  Age: 15 Year
  Sex: Male

DRUGS (4)
  1. OXYCODONE [Suspect]
     Active Substance: OXYCODONE
     Indication: Product used for unknown indication
     Dosage: TOOK THREE OXY?S
     Route: 065
  2. FENTANYL [Suspect]
     Active Substance: FENTANYL
     Indication: Product used for unknown indication
     Dosage: UNK
     Route: 065
  3. KETAMINE [Suspect]
     Active Substance: KETAMINE
     Indication: Product used for unknown indication
     Dosage: UNK
     Route: 065
  4. ACETAMINOPHEN [Suspect]
     Active Substance: ACETAMINOPHEN
     Indication: Product used for unknown indication
     Dosage: UNK
     Route: 065

REACTIONS (13)
  - Cardiogenic shock [Unknown]
  - Hypertension [Unknown]
  - Unresponsive to stimuli [Unknown]
  - Cardiac failure acute [Unknown]
  - Hypoxia [Unknown]
  - Overdose [Unknown]
  - Tachycardia [Unknown]
  - Miosis [Unknown]
  - Respiratory failure [Unknown]
  - Pulmonary oedema [Unknown]
  - Endotracheal intubation [Unknown]
  - Product use issue [Unknown]
  - Suspected counterfeit product [Unknown]
